FAERS Safety Report 14627958 (Version 2)
Quarter: 2018Q3

REPORT INFORMATION
  Report Type: Spontaneous
  Country: JP (occurrence: JP)
  Receive Date: 20180312
  Receipt Date: 20180703
  Transmission Date: 20181010
  Serious: Yes (Hospitalization, Other)
  Sender: FDA-Public Use
  Company Number: JP-009507513-1803JPN000761J

PATIENT
  Age: 89 Year
  Sex: Female

DRUGS (2)
  1. FOSAMAC TABLETS 35MG [Suspect]
     Active Substance: ALENDRONATE SODIUM
     Indication: OSTEOPOROSIS
     Dosage: 35 MG, QW
     Route: 048
     Dates: start: 20140428, end: 20141027
  2. BONVIVA [Suspect]
     Active Substance: IBANDRONATE SODIUM
     Indication: OSTEOPOROSIS
     Dosage: 1 MG, QM
     Route: 042
     Dates: start: 20141103, end: 20170301

REACTIONS (4)
  - Osteonecrosis of jaw [Not Recovered/Not Resolved]
  - Herpes virus infection [Unknown]
  - Abdominal pain [Unknown]
  - Haemodialysis [Unknown]

NARRATIVE: CASE EVENT DATE: 20161202
